FAERS Safety Report 23662649 (Version 1)
Quarter: 2024Q1

REPORT INFORMATION
  Report Type: Spontaneous
  Country: US (occurrence: None)
  Receive Date: 20240321
  Receipt Date: 20240321
  Transmission Date: 20240410
  Serious: No
  Sender: FDA-Public Use
  Company Number: None

PATIENT
  Age: 62 Year
  Sex: Female

DRUGS (3)
  1. TACROLIMUS [Suspect]
     Active Substance: TACROLIMUS
     Indication: Subacute cutaneous lupus erythematosus
     Dosage: FREQUENCY : TWICE A DAY;?
     Route: 061
     Dates: start: 202311
  2. TACROLIMUS [Suspect]
     Active Substance: TACROLIMUS
     Indication: Rosacea
  3. TACROLIMUS [Suspect]
     Active Substance: TACROLIMUS
     Indication: Hidradenitis

REACTIONS (1)
  - Pneumonia [None]
